FAERS Safety Report 17421115 (Version 1)
Quarter: 2020Q1

REPORT INFORMATION
  Report Type: Report from Study
  Country: BR (occurrence: BR)
  Receive Date: 20200214
  Receipt Date: 20200214
  Transmission Date: 20200409
  Serious: Yes (Hospitalization, Other)
  Sender: FDA-Public Use
  Company Number: BR-UCBSA-2020005332

PATIENT
  Sex: Female
  Weight: 43 kg

DRUGS (4)
  1. DIGOXINA [Concomitant]
     Active Substance: DIGOXIN
     Indication: CARDIAC OPERATION
     Route: 048
  2. OXOTRON [Concomitant]
     Indication: RHEUMATOID ARTHRITIS
     Route: 048
  3. CERTOLIZUMAB PEGOL [Suspect]
     Active Substance: CERTOLIZUMAB PEGOL
     Indication: RHEUMATOID ARTHRITIS
     Dosage: UNK
     Route: 058
     Dates: start: 201801, end: 201808
  4. FUROSEMIDA [FUROSEMIDE SODIUM] [Concomitant]
     Indication: CARDIAC OPERATION
     Route: 048

REACTIONS (2)
  - Post procedural complication [Unknown]
  - Hernia [Unknown]

NARRATIVE: CASE EVENT DATE: 2018
